FAERS Safety Report 11518608 (Version 3)
Quarter: 2015Q4

REPORT INFORMATION
  Report Type: Report from Study
  Country: US (occurrence: US)
  Receive Date: 20150917
  Receipt Date: 20151013
  Transmission Date: 20160304
  Serious: Yes (Hospitalization)
  Sender: FDA-Public Use
  Company Number: US-BAYER-2015-409341

PATIENT
  Age: 62 Year
  Sex: Female

DRUGS (1)
  1. STIVARGA [Suspect]
     Active Substance: REGORAFENIB
     Indication: RECTOSIGMOID CANCER
     Dosage: 120 MG, DAILY (40MG, 3 TABLETS, DAILY)
     Route: 048
     Dates: start: 20150820, end: 20150904

REACTIONS (15)
  - Fatigue [Recovered/Resolved]
  - Dysphonia [Not Recovered/Not Resolved]
  - Feeling abnormal [Recovered/Resolved]
  - Confusional state [None]
  - Diarrhoea [Recovering/Resolving]
  - Fatigue [Not Recovered/Not Resolved]
  - Pyrexia [Recovered/Resolved]
  - Pain in extremity [Not Recovered/Not Resolved]
  - Fall [None]
  - Feeding disorder [None]
  - Disorientation [Recovered/Resolved]
  - Asthenia [Not Recovered/Not Resolved]
  - Stomatitis [Recovered/Resolved]
  - Muscle spasms [None]
  - Blood potassium decreased [None]

NARRATIVE: CASE EVENT DATE: 20150822
